FAERS Safety Report 4723294-1 (Version None)
Quarter: 2005Q3

REPORT INFORMATION
  Report Type: 
  Country: None (occurrence: None)
  Receive Date: 20050719
  Receipt Date: 20041019
  Transmission Date: 20060218
  Serious: Yes (Other)
  Sender: FDA-Public Use
  Company Number: 206467

PATIENT
  Age: 41 Year
  Sex: Female
  Weight: 48.5349 kg

DRUGS (5)
  1. AVONEX [Suspect]
     Indication: MULTIPLE SCLEROSIS
     Dosage: 30 UG; QW; IM
     Route: 030
     Dates: start: 19970101, end: 19970101
  2. AVONEX [Suspect]
     Indication: MULTIPLE SCLEROSIS
     Dosage: 30 UG; QW; IM
     Route: 030
     Dates: start: 20041015
  3. BACLOFEN [Concomitant]
  4. ZOLOFT [Concomitant]
  5. UROQID-ACID [Concomitant]

REACTIONS (2)
  - CONVULSION [None]
  - INFLUENZA LIKE ILLNESS [None]
